FAERS Safety Report 11415184 (Version 1)
Quarter: 2015Q3

REPORT INFORMATION
  Report Type: Spontaneous
  Country: US (occurrence: None)
  Receive Date: 20150824
  Receipt Date: 20150824
  Transmission Date: 20151125
  Serious: No
  Sender: FDA-Public Use
  Company Number: None

PATIENT
  Age: 61 Year
  Sex: Female
  Weight: 73.48 kg

DRUGS (2)
  1. KETOROLAC [Suspect]
     Active Substance: KETOROLAC\KETOROLAC TROMETHAMINE
     Indication: IRITIS
     Dosage: 1 GTT OU QD TOPICAL
     Route: 061
     Dates: start: 20150619, end: 20150721
  2. KETOROLAC [Suspect]
     Active Substance: KETOROLAC\KETOROLAC TROMETHAMINE
     Indication: MACULAR FIBROSIS
     Dosage: 1 GTT OU QD TOPICAL
     Route: 061
     Dates: start: 20150619, end: 20150721

REACTIONS (5)
  - Visual acuity reduced [None]
  - Iritis [None]
  - Condition aggravated [None]
  - Discomfort [None]
  - Lacrimation increased [None]

NARRATIVE: CASE EVENT DATE: 20150619
